FAERS Safety Report 7744027-0 (Version None)
Quarter: 2011Q3

REPORT INFORMATION
  Report Type: 
  Country: None (occurrence: None)
  Receive Date: 20110912
  Receipt Date: 20110831
  Transmission Date: 20111222
  Serious: Yes (Other)
  Sender: FDA-Public Use
  Company Number: JP-PFIZER INC-2011212312

PATIENT
  Age: 55 Year
  Sex: Female

DRUGS (5)
  1. RABEPRAZOLE SODIUM [Concomitant]
  2. POLARAMINE [Concomitant]
  3. OLOPATADINE HCL [Concomitant]
  4. CELECOXIB [Suspect]
     Route: 048
  5. GARENOXACIN [Suspect]
     Dosage: UNK
     Route: 048
     Dates: start: 20110829

REACTIONS (6)
  - HYPOAESTHESIA [None]
  - HYPERHIDROSIS [None]
  - MALAISE [None]
  - HEADACHE [None]
  - ABDOMINAL DISCOMFORT [None]
  - LOSS OF CONSCIOUSNESS [None]
